FAERS Safety Report 19103491 (Version 1)
Quarter: 2021Q2

REPORT INFORMATION
  Report Type: Spontaneous
  Country: GB (occurrence: GB)
  Receive Date: 20210407
  Receipt Date: 20210407
  Transmission Date: 20210717
  Serious: No
  Sender: FDA-Public Use
  Company Number: GB-GW PHARMA-202103GBGW01221

PATIENT

DRUGS (2)
  1. EPIDYOLEX [Suspect]
     Active Substance: CANNABIDIOL
     Indication: PRODUCT USED FOR UNKNOWN INDICATION
     Dosage: 16.6 MG/KG/DAY, 140 MILLIGRAM, BID
     Route: 048
     Dates: start: 202005
  2. CLOBAZAM. [Concomitant]
     Active Substance: CLOBAZAM
     Indication: PRODUCT USED FOR UNKNOWN INDICATION
     Dosage: 0.4 MG/KG/DAY, 2 MILLIGRAM, TID
     Route: 065

REACTIONS (1)
  - Carnitine increased [Unknown]

NARRATIVE: CASE EVENT DATE: 20210218
